FAERS Safety Report 21400444 (Version 1)
Quarter: 2022Q3

REPORT INFORMATION
  Report Type: Spontaneous
  Country: US (occurrence: None)
  Receive Date: 20220930
  Receipt Date: 20220930
  Transmission Date: 20221026
  Serious: Yes (Death)
  Sender: FDA-Public Use
  Company Number: None

PATIENT
  Sex: Male

DRUGS (1)
  1. SORAFENIB [Suspect]
     Active Substance: SORAFENIB
     Indication: Chronic hepatitis B
     Dosage: FREQUENCY : DAILY;?
     Route: 048
     Dates: start: 20220830

REACTIONS (4)
  - Asthenia [None]
  - Fall [None]
  - Head injury [None]
  - Haemorrhage [None]
